FAERS Safety Report 4541355-7 (Version None)
Quarter: 2004Q4

REPORT INFORMATION
  Report Type: 
  Country: None (occurrence: None)
  Receive Date: 20041229
  Receipt Date: 20041019
  Transmission Date: 20050328
  Serious: Yes (Other)
  Sender: FDA-Public Use
  Company Number: DE-MERCK-0410DEU00542

PATIENT
  Age: 72 Year
  Sex: Female

DRUGS (6)
  1. VIOXX [Suspect]
     Indication: BACK PAIN
     Route: 048
     Dates: start: 20040101, end: 20040101
  2. THEOPHYLLINE [Concomitant]
     Route: 048
  3. ASPIRIN [Concomitant]
     Route: 048
  4. ALLOPURINOL [Concomitant]
     Route: 048
  5. CROMOLYN SODIUM AND REPROTEROL HYDROCHLORIDE [Concomitant]
     Route: 055
  6. FUROSEMIDE AND SPIRONOLACTONE [Concomitant]
     Route: 048

REACTIONS (2)
  - CEREBROVASCULAR ACCIDENT [None]
  - MONOPARESIS [None]
